FAERS Safety Report 5988292-9 (Version None)
Quarter: 2008Q4

REPORT INFORMATION
  Report Type: 
  Country: None (occurrence: None)
  Receive Date: 20081204
  Receipt Date: 20081121
  Transmission Date: 20090506
  Serious: Yes (Hospitalization)
  Sender: FDA-Public Use
  Company Number: D368

PATIENT
  Age: 74 Year
  Sex: Female
  Weight: 40.8237 kg

DRUGS (3)
  1. IPRATROPIUM BROMIDE [Suspect]
     Indication: BRONCHOSPASM
     Dosage: INHALATION BY NEBULIZER
  2. ASPIRIN [Concomitant]
  3. CORDARONE [Concomitant]

REACTIONS (3)
  - DYSSTASIA [None]
  - PALPITATIONS [None]
  - TREMOR [None]
